FAERS Safety Report 25042937 (Version 2)
Quarter: 2025Q1

REPORT INFORMATION
  Report Type: Spontaneous
  Country: US (occurrence: US)
  Receive Date: 20250305
  Receipt Date: 20250306
  Transmission Date: 20250408
  Serious: No
  Sender: BIOGEN
  Company Number: US-BIOGEN-2023BI01187348

PATIENT
  Sex: Female

DRUGS (17)
  1. VUMERITY [Suspect]
     Active Substance: DIROXIMEL FUMARATE
     Indication: Multiple sclerosis
     Dosage: TAKE 2 CAPSULES (462 MG) BY MOUTH 2 (TWO) TIMES A DAY
     Route: 050
  2. VUMERITY [Suspect]
     Active Substance: DIROXIMEL FUMARATE
     Route: 050
     Dates: start: 20220713
  3. ROSUVASTATIN CALCIUM [Concomitant]
     Active Substance: ROSUVASTATIN CALCIUM
     Route: 050
  4. LACOSAMIDE [Concomitant]
     Active Substance: LACOSAMIDE
     Route: 050
  5. CLOBAZAM [Concomitant]
     Active Substance: CLOBAZAM
     Route: 050
  6. PRIMIDONE [Concomitant]
     Active Substance: PRIMIDONE
     Route: 050
  7. VITAMIN C [Concomitant]
     Active Substance: ASCORBIC ACID
     Route: 050
  8. MAGNESIUM [Concomitant]
     Active Substance: MAGNESIUM
     Route: 050
  9. VITAMIN B COMPLEX [Concomitant]
     Active Substance: CYANOCOBALAMIN\DEXPANTHENOL\NIACINAMIDE\PYRIDOXINE HYDROCHLORIDE\RIBOFLAVIN 5^-PHOSPHATE SODIUM\THIA
     Route: 050
  10. IODINE [Concomitant]
     Active Substance: IODINE
     Route: 050
  11. VITAMIN D3 [Concomitant]
     Active Substance: CHOLECALCIFEROL
     Route: 050
  12. ZINC [Concomitant]
     Active Substance: ZINC
     Route: 050
  13. QUETIAPINE FUMARATE [Concomitant]
     Active Substance: QUETIAPINE FUMARATE
     Route: 050
  14. SELENIUM [Concomitant]
     Active Substance: SELENIUM
     Route: 050
  15. ALBUTEROL [Concomitant]
     Active Substance: ALBUTEROL
     Route: 050
  16. COENZYME Q10 [Concomitant]
     Active Substance: DIETARY SUPPLEMENT\UBIDECARENONE
     Route: 050
  17. MELATONIN [Concomitant]
     Active Substance: MELATONIN
     Route: 050

REACTIONS (3)
  - Fatigue [Unknown]
  - Rash [Not Recovered/Not Resolved]
  - Flushing [Not Recovered/Not Resolved]

NARRATIVE: CASE EVENT DATE: 20230101
